FAERS Safety Report 10365751 (Version 1)
Quarter: 2014Q3

REPORT INFORMATION
  Report Type: Spontaneous
  Country: US (occurrence: US)
  Receive Date: 20140806
  Receipt Date: 20140806
  Transmission Date: 20150326
  Serious: No
  Sender: FDA-Public Use
  Company Number: US-B.I. PHARMACEUTICALS,INC./RIDGEFIELD-2014-BI-35525BP

PATIENT
  Age: 71 Year
  Sex: Male
  Weight: 82 kg

DRUGS (14)
  1. CARBIDOPA-LEVODOPA [Concomitant]
     Active Substance: CARBIDOPA\LEVODOPA
     Indication: PARKINSON^S DISEASE
     Dosage: 150 MG
     Route: 048
     Dates: start: 2013
  2. MELOXICAM. [Concomitant]
     Active Substance: MELOXICAM
     Indication: ARTHRITIS
     Dosage: 7.5 MG
     Route: 048
     Dates: start: 2011
  3. THERALITH XR [Concomitant]
     Indication: NEPHROLITHIASIS
     Route: 048
     Dates: start: 2011
  4. MULTIVITAMINS [Concomitant]
     Active Substance: VITAMINS
     Route: 048
  5. LISINOPRIL. [Concomitant]
     Active Substance: LISINOPRIL
     Indication: HYPERTENSION
     Dosage: 10 MG
     Route: 048
     Dates: start: 2000
  6. METOPROLOL [Concomitant]
     Active Substance: METOPROLOL
     Indication: HYPERTENSION
     Dosage: 50 MG
     Route: 048
     Dates: start: 2000
  7. OMEGA Q PLUS [Concomitant]
     Indication: CARDIAC FAILURE CONGESTIVE
     Dosage: 600 MG
     Route: 048
     Dates: start: 2012
  8. MIRAPEX [Suspect]
     Active Substance: PRAMIPEXOLE DIHYDROCHLORIDE
     Indication: PARKINSON^S DISEASE
     Dosage: 1.5 MG
     Route: 048
     Dates: start: 201406, end: 201406
  9. FINASTERIDE. [Concomitant]
     Active Substance: FINASTERIDE
     Indication: PROSTATOMEGALY
     Dosage: 10 MG
     Route: 048
     Dates: start: 2011
  10. ASPIRIN. [Concomitant]
     Active Substance: ASPIRIN
     Dosage: 81 MG
     Route: 048
  11. CRESTOR [Concomitant]
     Active Substance: ROSUVASTATIN CALCIUM
     Indication: BLOOD CHOLESTEROL INCREASED
     Dosage: 10 MG
     Route: 048
     Dates: start: 2011
  12. BENICAR [Concomitant]
     Active Substance: OLMESARTAN MEDOXOMIL
     Indication: HYPERTENSION
     Dosage: 300 MG
     Route: 048
     Dates: start: 2011
  13. METFORMAIN [Concomitant]
     Indication: DIABETES MELLITUS
     Dosage: 2250 MG
     Route: 048
     Dates: start: 2012
  14. FENOFIBRATE. [Concomitant]
     Active Substance: FENOFIBRATE
     Indication: BLOOD CHOLESTEROL INCREASED
     Dosage: 145 MG
     Route: 048
     Dates: start: 2011

REACTIONS (6)
  - Nausea [Recovered/Resolved]
  - Tremor [Recovered/Resolved]
  - Headache [Recovered/Resolved]
  - Myalgia [Recovered/Resolved]
  - Arthralgia [Recovered/Resolved]
  - Dizziness [Recovered/Resolved]

NARRATIVE: CASE EVENT DATE: 201406
